FAERS Safety Report 22659755 (Version 1)
Quarter: 2023Q2

REPORT INFORMATION
  Report Type: Spontaneous
  Country: US (occurrence: None)
  Receive Date: 20230630
  Receipt Date: 20230630
  Transmission Date: 20230721
  Serious: Yes (Hospitalization)
  Sender: FDA-Public Use
  Company Number: None

PATIENT
  Sex: Female

DRUGS (2)
  1. TACROLIMUS [Suspect]
     Active Substance: TACROLIMUS
     Indication: Renal transplant
     Dosage: TAKE 4 CAPSULES , BY MOUTH EVERY MORNING AND 4 CAPSULES EVERY EVENING
     Route: 048
     Dates: start: 202305
  2. MYCOPHENOLIC ACID [Suspect]
     Active Substance: MYCOPHENOLIC ACID
     Indication: Renal transplant
     Dosage: TAKE 3 CAPSULES BY MOUTH EVERY MORNING AND 3 CAPSULES EVERY EVENING??
     Route: 048
     Dates: start: 202305

REACTIONS (5)
  - Chills [None]
  - Pyrexia [None]
  - Nausea [None]
  - Vomiting [None]
  - Urinary tract infection [None]
